FAERS Safety Report 4602308-3 (Version None)
Quarter: 2005Q2

REPORT INFORMATION
  Report Type: 
  Country: None (occurrence: None)
  Receive Date: 20050223
  Receipt Date: 20050107
  Transmission Date: 20051028
  Serious: No
  Sender: FDA-Public Use
  Company Number: 211556

PATIENT
  Sex: Male

DRUGS (1)
  1. RAPTIVA [Suspect]
     Dosage: SUBCUTANEOUS
     Route: 058
     Dates: start: 20041118, end: 20041223

REACTIONS (4)
  - FATIGUE [None]
  - NAUSEA [None]
  - PAIN [None]
  - PYREXIA [None]
